FAERS Safety Report 10085791 (Version 1)
Quarter: 2014Q2

REPORT INFORMATION
  Report Type: Spontaneous
  Country: US (occurrence: US)
  Receive Date: 20140418
  Receipt Date: 20140418
  Transmission Date: 20141212
  Serious: No
  Sender: FDA-Public Use
  Company Number: US-PFIZER INC-2014107374

PATIENT
  Age: 81 Year
  Sex: Female
  Weight: 59.4 kg

DRUGS (2)
  1. GABAPENTIN [Suspect]
     Dosage: 100 MG, 3X/DAY
  2. AMITIZA [Concomitant]
     Dosage: UNK

REACTIONS (1)
  - Drug ineffective [Unknown]
